FAERS Safety Report 26099126 (Version 1)
Quarter: 2025Q4

REPORT INFORMATION
  Report Type: Spontaneous
  Country: AU (occurrence: AU)
  Receive Date: 20251128
  Receipt Date: 20251128
  Transmission Date: 20260117
  Serious: Yes (Other)
  Sender: ACCORD
  Company Number: None

PATIENT
  Age: 84 Year

DRUGS (5)
  1. METHOTREXATE [Suspect]
     Active Substance: METHOTREXATE
     Indication: Product used for unknown indication
  2. PEMBROLIZUMAB [Suspect]
     Active Substance: PEMBROLIZUMAB
     Indication: Product used for unknown indication
  3. PREDNISONE [Suspect]
     Active Substance: PREDNISONE
     Indication: Product used for unknown indication
  4. AZITHROMYCIN [Concomitant]
     Active Substance: AZITHROMYCIN
  5. VANCOMYCIN [Concomitant]
     Active Substance: VANCOMYCIN

REACTIONS (10)
  - Acute respiratory failure [Unknown]
  - Connective tissue disease-associated interstitial lung disease [Unknown]
  - Hepatitis [Unknown]
  - Metastatic neoplasm [Unknown]
  - Non-small cell lung cancer [Unknown]
  - Pneumonia [Unknown]
  - Pulmonary toxicity [Unknown]
  - Rheumatoid arthritis [Unknown]
  - Dermatitis [Unknown]
  - Post herpetic neuralgia [Unknown]
